FAERS Safety Report 25383503 (Version 2)
Quarter: 2025Q2

REPORT INFORMATION
  Report Type: Spontaneous
  Country: US (occurrence: US)
  Receive Date: 20250602
  Receipt Date: 20250609
  Transmission Date: 20250717
  Serious: Yes (Other)
  Sender: AUROBINDO
  Company Number: US-AUROBINDO-AUR-APL-2025-027669

PATIENT
  Age: 58 Year
  Sex: Female

DRUGS (21)
  1. AMANTADINE [Suspect]
     Active Substance: AMANTADINE
     Indication: Hereditary ataxia
     Route: 065
  2. BACLOFEN [Suspect]
     Active Substance: BACLOFEN
     Indication: Hereditary ataxia
     Route: 065
  3. BACLOFEN [Suspect]
     Active Substance: BACLOFEN
     Indication: Balance disorder
  4. GABAPENTIN [Suspect]
     Active Substance: GABAPENTIN
     Indication: Hereditary ataxia
     Route: 065
  5. MIRTAZAPINE [Suspect]
     Active Substance: MIRTAZAPINE
     Indication: Hereditary ataxia
     Route: 065
  6. PANTOPRAZOLE [Suspect]
     Active Substance: PANTOPRAZOLE
     Indication: Hereditary ataxia
     Route: 065
  7. MODAFINIL [Suspect]
     Active Substance: MODAFINIL
     Indication: Hereditary ataxia
     Route: 065
  8. MECLIZINE [Suspect]
     Active Substance: MECLIZINE HYDROCHLORIDE
     Indication: Hereditary ataxia
     Route: 065
  9. MECLIZINE [Suspect]
     Active Substance: MECLIZINE HYDROCHLORIDE
     Indication: Dizziness
  10. DALFAMPRIDINE [Suspect]
     Active Substance: DALFAMPRIDINE
     Indication: Hereditary ataxia
     Route: 065
  11. DALFAMPRIDINE [Suspect]
     Active Substance: DALFAMPRIDINE
     Indication: Balance disorder
  12. ACETAZOLAMIDE [Suspect]
     Active Substance: ACETAZOLAMIDE
     Indication: Hereditary ataxia
     Route: 065
  13. ACETAZOLAMIDE [Suspect]
     Active Substance: ACETAZOLAMIDE
     Indication: Diplopia
  14. RILUZOLE [Suspect]
     Active Substance: RILUZOLE
     Indication: Hereditary ataxia
     Route: 065
  15. ACETYLLEUCINE [Suspect]
     Active Substance: ACETYLLEUCINE
     Indication: Hereditary ataxia
     Route: 065
  16. CARBIDOPA\LEVODOPA [Suspect]
     Active Substance: CARBIDOPA\LEVODOPA
     Indication: Hereditary ataxia
     Route: 065
  17. AMPHETAMINE\DEXTROAMPHETAMINE [Suspect]
     Active Substance: AMPHETAMINE\DEXTROAMPHETAMINE
     Indication: Hereditary ataxia
     Route: 065
  18. UBIDECARENONE [Suspect]
     Active Substance: UBIDECARENONE
     Indication: Hereditary ataxia
     Route: 065
  19. IMMUNE GLOBULIN NOS [Suspect]
     Active Substance: IMMUNE GLOBULIN NOS
     Indication: Hereditary ataxia
     Route: 042
  20. BOTULINUM TOXIN TYPE A [Concomitant]
     Active Substance: BOTULINUM TOXIN TYPE A
     Indication: Back pain
     Route: 065
  21. BOTULINUM TOXIN TYPE A [Concomitant]
     Active Substance: BOTULINUM TOXIN TYPE A
     Indication: Arthralgia

REACTIONS (1)
  - Drug ineffective [Unknown]
